FAERS Safety Report 5262885-9 (Version None)
Quarter: 2007Q1

REPORT INFORMATION
  Report Type: 
  Country: None (occurrence: None)
  Receive Date: 20070312
  Receipt Date: 20070228
  Transmission Date: 20070707
  Serious: Yes (Hospitalization)
  Sender: FDA-Public Use
  Company Number: 2007AP00834

PATIENT
  Age: 93 Year
  Sex: Female
  Weight: 55 kg

DRUGS (11)
  1. MEROPEN [Suspect]
     Indication: BRONCHOPNEUMONIA
     Route: 041
     Dates: start: 20061208, end: 20061211
  2. NITRODERM [Concomitant]
     Indication: CARDIAC FAILURE
     Route: 062
     Dates: start: 20060606
  3. BUFFERIN [Concomitant]
     Indication: CEREBRAL INFARCTION
     Route: 051
     Dates: start: 20060610
  4. LASIX [Concomitant]
     Indication: CARDIAC FAILURE
     Route: 051
     Dates: start: 20060610
  5. LASIX [Concomitant]
     Route: 040
     Dates: start: 20061208
  6. DOGMATIL [Concomitant]
     Indication: DECREASED APPETITE
     Route: 051
     Dates: start: 20060610
  7. TIZANON [Concomitant]
     Indication: GASTRIC ULCER
     Route: 051
     Dates: start: 20060610
  8. FULCALIQ NO.3 [Concomitant]
     Indication: DYSPHAGIA
     Route: 041
     Dates: start: 20060905
  9. HUMULIN R [Concomitant]
     Indication: DIABETES MELLITUS
     Route: 065
     Dates: start: 20060905
  10. MEDLENIK [Concomitant]
     Indication: TRACE ELEMENT DEFICIENCY
     Route: 041
     Dates: start: 20060907
  11. DIGOXIN [Concomitant]
     Indication: ATRIAL FIBRILLATION
     Route: 040
     Dates: start: 20060907, end: 20060909

REACTIONS (1)
  - HEPATIC FUNCTION ABNORMAL [None]
